FAERS Safety Report 12454726 (Version 1)
Quarter: 2016Q2

REPORT INFORMATION
  Report Type: Spontaneous
  Country: US (occurrence: None)
  Receive Date: 20160609
  Receipt Date: 20160609
  Transmission Date: 20160815
  Serious: Yes (Life-Threatening, Hospitalization, Disabling, Other)
  Sender: FDA-Public Use
  Company Number: None

PATIENT
  Age: 20 Year
  Sex: Female
  Weight: 72.58 kg

DRUGS (4)
  1. MEDTRONIC INSULIN PUMP [Concomitant]
  2. FLUOXETINE [Concomitant]
     Active Substance: FLUOXETINE HYDROCHLORIDE
  3. NOVOLOG [Concomitant]
     Active Substance: INSULIN ASPART
  4. INVOKANA [Suspect]
     Active Substance: CANAGLIFLOZIN
     Indication: TYPE 1 DIABETES MELLITUS
     Route: 048

REACTIONS (12)
  - Diabetic ketoacidosis [None]
  - Compartment syndrome [None]
  - Coma [None]
  - Hypoxia [None]
  - Panic attack [None]
  - Nerve injury [None]
  - Migraine [None]
  - Pneumonia aspiration [None]
  - Respiratory failure [None]
  - Skin graft [None]
  - Dyspnoea [None]
  - Peroneal nerve palsy [None]

NARRATIVE: CASE EVENT DATE: 20150714
